FAERS Safety Report 21093294 (Version 3)
Quarter: 2022Q3

REPORT INFORMATION
  Report Type: Report from Study
  Country: BR (occurrence: BR)
  Receive Date: 20220718
  Receipt Date: 20220801
  Transmission Date: 20221026
  Serious: Yes (Other)
  Sender: FDA-Public Use
  Company Number: BR-NOVARTISPH-NVSC2022BR159634

PATIENT
  Sex: Male
  Weight: 87 kg

DRUGS (2)
  1. COSENTYX [Suspect]
     Active Substance: SECUKINUMAB
     Indication: Psoriasis
     Dosage: 300 MG, QMO (2 APPLICATIONS, STARTED 3 YEARS AGO)
     Route: 058
  2. LOSARTAN [Concomitant]
     Active Substance: LOSARTAN
     Indication: Blood pressure increased
     Dosage: 50 MG, BID
     Route: 048
     Dates: start: 2021

REACTIONS (11)
  - Tympanic membrane perforation [Recovered/Resolved]
  - Deafness unilateral [Recovered/Resolved]
  - Ear haemorrhage [Recovered/Resolved]
  - Cataract [Recovered/Resolved]
  - Blindness [Recovered/Resolved]
  - Tuberculosis [Recovered/Resolved with Sequelae]
  - Cough [Not Recovered/Not Resolved]
  - Secretion discharge [Not Recovered/Not Resolved]
  - Haemoptysis [Not Recovered/Not Resolved]
  - Pain in extremity [Not Recovered/Not Resolved]
  - Arthralgia [Not Recovered/Not Resolved]

NARRATIVE: CASE EVENT DATE: 20210101
